FAERS Safety Report 5300070-2 (Version None)
Quarter: 2007Q2

REPORT INFORMATION
  Report Type: 
  Country: None (occurrence: None)
  Receive Date: 20070410
  Receipt Date: 20070330
  Transmission Date: 20071010
  Serious: Yes (Hospitalization, Disabling)
  Sender: FDA-Public Use
  Company Number: B0438876A

PATIENT
  Age: 76 Year
  Sex: Female
  Weight: 69.8539 kg

DRUGS (10)
  1. CLOXACILLIN SODIUM [Suspect]
     Indication: ERYSIPELAS
     Dosage: 500 MG/THREE TIMES PER DAY/ORAL
     Route: 048
     Dates: start: 20060101, end: 20060101
  2. BEEPIN-VK (FORMULATION UNKNOWN) (PENICILLIN V POTASSIUM) [Suspect]
     Indication: ERYSIPELAS
     Dosage: THREE TIMES PER DAY/ORAL
     Route: 048
     Dates: start: 20060805, end: 20060810
  3. DEXCHLORPHENIRAM.MALEATE [Concomitant]
  4. DIOSMIN [Concomitant]
  5. PARACETAMOL [Concomitant]
  6. PRISTINAMYCIN [Concomitant]
  7. DRESSING [Concomitant]
  8. FRUSEMIDE [Concomitant]
  9. PROCYANIDOLIC OLIGOMER [Concomitant]
  10. PARACETAMOL [Concomitant]

REACTIONS (26)
  - ABASIA [None]
  - ARTERIAL THROMBOSIS LIMB [None]
  - ARTERITIS OBLITERANS [None]
  - BLOOD FIBRINOGEN INCREASED [None]
  - DRUG HYPERSENSITIVITY [None]
  - EOSINOPHILIA [None]
  - ERECTILE DYSFUNCTION [None]
  - FATIGUE [None]
  - HIATUS HERNIA [None]
  - HYPERPLASIA [None]
  - HYPOALBUMINAEMIA [None]
  - IMMUNOGLOBULINS INCREASED [None]
  - INFLAMMATION [None]
  - ISCHAEMIA [None]
  - MICROCYTIC ANAEMIA [None]
  - MONOCYTE COUNT INCREASED [None]
  - NECROSIS [None]
  - PERIPHERAL ARTERIAL OCCLUSIVE DISEASE [None]
  - POLYP [None]
  - POPLITEAL PULSE DECREASED [None]
  - PROTEINURIA [None]
  - PRURITUS [None]
  - PYREXIA [None]
  - RHABDOMYOLYSIS [None]
  - SERUM FERRITIN DECREASED [None]
  - SKIN ULCER [None]
